FAERS Safety Report 19270839 (Version 1)
Quarter: 2021Q2

REPORT INFORMATION
  Report Type: Spontaneous
  Country: US (occurrence: US)
  Receive Date: 20210518
  Receipt Date: 20210518
  Transmission Date: 20210717
  Serious: No
  Sender: FDA-Public Use
  Company Number: US-TAKEDA-2021TUS030589

PATIENT
  Age: 3 Year

DRUGS (2)
  1. ENTYVIO [Concomitant]
     Active Substance: VEDOLIZUMAB
     Dosage: UNK
     Route: 065
  2. ELAPRASE [Suspect]
     Active Substance: IDURSULFASE
     Indication: PRODUCT USED FOR UNKNOWN INDICATION
     Dosage: UNK
     Route: 065

REACTIONS (5)
  - Infusion site swelling [Unknown]
  - Crying [Unknown]
  - Infusion site extravasation [Unknown]
  - Central venous catheterisation [Unknown]
  - Needle issue [Unknown]

NARRATIVE: CASE EVENT DATE: 20210512
